FAERS Safety Report 14897149 (Version 1)
Quarter: 2018Q2

REPORT INFORMATION
  Report Type: Spontaneous
  Country: US (occurrence: US)
  Receive Date: 20180515
  Receipt Date: 20180515
  Transmission Date: 20180711
  Serious: Yes (Life-Threatening, Hospitalization, Other)
  Sender: FDA-Public Use
  Company Number: US-EPIC PHARMA LLC-2018EPC00250

PATIENT
  Age: 13 Year
  Sex: Female

DRUGS (2)
  1. MORPHINE SULFATE. [Suspect]
     Active Substance: MORPHINE SULFATE
     Dosage: UNK
     Route: 048
  2. MORPHINE SULFATE. [Suspect]
     Active Substance: MORPHINE SULFATE
     Route: 065

REACTIONS (7)
  - Drug dependence [Not Recovered/Not Resolved]
  - Acute kidney injury [Recovering/Resolving]
  - Overdose [Recovered/Resolved]
  - Acute respiratory distress syndrome [Recovering/Resolving]
  - Toxicity to various agents [Recovering/Resolving]
  - Acute chest syndrome [Recovering/Resolving]
  - Posterior reversible encephalopathy syndrome [Recovering/Resolving]
